FAERS Safety Report 17878058 (Version 2)
Quarter: 2020Q3

REPORT INFORMATION
  Report Type: Spontaneous
  Country: IT (occurrence: IT)
  Receive Date: 20200610
  Receipt Date: 20200714
  Transmission Date: 20201103
  Serious: Yes (Other)
  Sender: FDA-Public Use
  Company Number: IT-AUROBINDO-AUR-APL-2020-027677

PATIENT
  Age: 18 Year
  Sex: Male

DRUGS (1)
  1. ARIPIPRAZOLE. [Suspect]
     Active Substance: ARIPIPRAZOLE
     Indication: DEPRESSION
     Dosage: 10 MILLILITER, ONCE A DAY
     Route: 065

REACTIONS (4)
  - Disturbance in social behaviour [Unknown]
  - Loss of personal independence in daily activities [Unknown]
  - Asthenia [Unknown]
  - Antisocial behaviour [Unknown]
